FAERS Safety Report 10099428 (Version 1)
Quarter: 2014Q2

REPORT INFORMATION
  Report Type: Spontaneous
  Country: US (occurrence: US)
  Receive Date: 20140423
  Receipt Date: 20140423
  Transmission Date: 20141212
  Serious: No
  Sender: FDA-Public Use
  Company Number: US-009507513-1404USA004735

PATIENT
  Age: 6 Year
  Sex: Male

DRUGS (2)
  1. CLARITIN CHEWABLE TABLETS [Suspect]
     Indication: SEASONAL ALLERGY
     Dosage: 10 MG, QAM
     Route: 048
  2. CLARITIN CHEWABLE TABLETS [Suspect]
     Dosage: 10 MG, BID
     Route: 048
     Dates: start: 20140401

REACTIONS (1)
  - Accidental overdose [Unknown]
